FAERS Safety Report 11031165 (Version 1)
Quarter: 2015Q2

REPORT INFORMATION
  Report Type: Spontaneous
  Country: US (occurrence: US)
  Receive Date: 20150415
  Receipt Date: 20150415
  Transmission Date: 20150821
  Serious: No
  Sender: FDA-Public Use
  Company Number: US-ASTRAZENECA-2014SE30174

PATIENT
  Age: 46 Year
  Sex: Male

DRUGS (3)
  1. IODINE [Suspect]
     Active Substance: IODINE
     Route: 065
  2. PRILOSEC OTC [Suspect]
     Active Substance: OMEPRAZOLE MAGNESIUM
     Route: 048
     Dates: start: 20140421, end: 20140421
  3. PRILOSEC OTC [Suspect]
     Active Substance: OMEPRAZOLE MAGNESIUM
     Route: 048
     Dates: start: 20140430, end: 20140430

REACTIONS (2)
  - Rash generalised [Not Recovered/Not Resolved]
  - Pruritus generalised [Not Recovered/Not Resolved]
